FAERS Safety Report 8136264-0 (Version None)
Quarter: 2012Q1

REPORT INFORMATION
  Report Type: 
  Country: None (occurrence: None)
  Receive Date: 20120214
  Receipt Date: 20120206
  Transmission Date: 20120608
  Serious: Yes (Hospitalization)
  Sender: FDA-Public Use
  Company Number: BE-ABBOTT-12P-013-0901364-00

PATIENT
  Sex: Male

DRUGS (1)
  1. HUMIRA [Suspect]
     Indication: ANKYLOSING SPONDYLITIS
     Dates: start: 20080714

REACTIONS (6)
  - CONVULSION [None]
  - HEADACHE [None]
  - IMPAIRED DRIVING ABILITY [None]
  - DEPRESSION [None]
  - IMPAIRED WORK ABILITY [None]
  - MALAISE [None]
